FAERS Safety Report 5699761-3 (Version None)
Quarter: 2008Q2

REPORT INFORMATION
  Report Type: 
  Country: None (occurrence: None)
  Receive Date: 20080408
  Receipt Date: 20080408
  Transmission Date: 20081010
  Serious: No
  Sender: FDA-Public Use
  Company Number: None

PATIENT
  Age: 53 Year
  Sex: Female
  Weight: 70.3075 kg

DRUGS (2)
  1. ZICAN NASAL SWAB [Suspect]
     Indication: NASOPHARYNGITIS
     Dosage: USED IN NOSE TO WARD OFF COLD; 2-4 TIMES /DAY NASAL
     Route: 045
  2. ZICAN NASAL SWAB [Suspect]
     Indication: PROPHYLAXIS
     Dosage: USED IN NOSE TO WARD OFF COLD; 2-4 TIMES /DAY NASAL
     Route: 045

REACTIONS (1)
  - ANOSMIA [None]
